FAERS Safety Report 6412891-3 (Version None)
Quarter: 2009Q4

REPORT INFORMATION
  Report Type: 
  Country: None (occurrence: None)
  Receive Date: 20091023
  Receipt Date: 20091020
  Transmission Date: 20100525
  Serious: Yes (Death, Other)
  Sender: FDA-Public Use
  Company Number: PHHY2009GB45321

PATIENT
  Sex: Male

DRUGS (2)
  1. CLOZARIL [Suspect]
     Indication: SCHIZOPHRENIA
     Dosage: UNK
     Route: 048
     Dates: start: 20041008
  2. ARIPIPRAZOLE [Concomitant]

REACTIONS (6)
  - CARDIAC DISORDER [None]
  - DEATH [None]
  - DIZZINESS [None]
  - FALL [None]
  - PSYCHOTIC DISORDER [None]
  - SINUS TACHYCARDIA [None]
